FAERS Safety Report 25794715 (Version 1)
Quarter: 2025Q3

REPORT INFORMATION
  Report Type: Spontaneous
  Country: GB (occurrence: GB)
  Receive Date: 20250912
  Receipt Date: 20250912
  Transmission Date: 20251021
  Serious: Yes (Other)
  Sender: UCB
  Company Number: GB-UCBSA-2025055390

PATIENT
  Age: 4 Year
  Sex: Male

DRUGS (2)
  1. KEPPRA [Suspect]
     Active Substance: LEVETIRACETAM
     Indication: Severe myoclonic epilepsy of infancy
  2. KEPPRA [Suspect]
     Active Substance: LEVETIRACETAM
     Indication: Product use in unapproved indication

REACTIONS (2)
  - Seizure [Unknown]
  - Product use in unapproved indication [Unknown]
